FAERS Safety Report 6867294-4 (Version None)
Quarter: 2010Q3

REPORT INFORMATION
  Report Type: 
  Country: None (occurrence: None)
  Receive Date: 20100722
  Receipt Date: 20100713
  Transmission Date: 20110219
  Serious: Yes (Other)
  Sender: FDA-Public Use
  Company Number: GB-PFIZER INC-2008091342

PATIENT
  Age: 59 Year
  Sex: Female
  Weight: 62 kg

DRUGS (7)
  1. CHAMPIX [Suspect]
     Indication: SMOKING CESSATION THERAPY
     Dosage: 1 MG, 2X/DAY
     Route: 048
     Dates: start: 20080905, end: 20081013
  2. BECLOMETASONE DIPROPIONATE [Concomitant]
     Indication: ASTHMA
     Dosage: 200 UG, 2X/DAY
     Route: 055
     Dates: start: 20080401
  3. BECLOMETASONE DIPROPIONATE [Concomitant]
     Indication: CHRONIC OBSTRUCTIVE PULMONARY DISEASE
  4. KLIOGEST ^NOVO INDUSTRI^ [Concomitant]
     Indication: HORMONE REPLACEMENT THERAPY
     Dosage: 1 DF, 1X/DAY
     Route: 048
     Dates: start: 20020101
  5. ALBUTEROL [Concomitant]
     Indication: ASTHMA
     Dosage: 100 UG, AS NEEDED
     Route: 055
     Dates: start: 20030901
  6. ALBUTEROL [Concomitant]
     Indication: CHRONIC OBSTRUCTIVE PULMONARY DISEASE
  7. ZOPICLONE [Concomitant]
     Indication: INSOMNIA
     Dosage: 7.5 MG, UNK
     Route: 048
     Dates: start: 20000801

REACTIONS (5)
  - DEPRESSION [None]
  - EATING DISORDER [None]
  - PARANOIA [None]
  - PSYCHOMOTOR RETARDATION [None]
  - SLEEP DISORDER [None]
